FAERS Safety Report 4589229-X (Version None)
Quarter: 2005Q1

REPORT INFORMATION
  Report Type: 
  Country: None (occurrence: None)
  Receive Date: 20050216
  Receipt Date: 20050201
  Transmission Date: 20050727
  Serious: Yes (Hospitalization)
  Sender: FDA-Public Use
  Company Number: 8008832

PATIENT
  Age: 44 Year
  Sex: Male
  Weight: 72.5 kg

DRUGS (3)
  1. KEPPRA [Suspect]
     Indication: CONVULSION
     Dosage: 500 MG 2/D PO
     Route: 048
     Dates: start: 20050101
  2. OXYCODONE HCL [Concomitant]
  3. GABAPENTIN [Concomitant]

REACTIONS (2)
  - DISEASE PROGRESSION [None]
  - PORPHYRIA [None]
